FAERS Safety Report 4481662-X (Version None)
Quarter: 2004Q4

REPORT INFORMATION
  Report Type: 
  Country: None (occurrence: None)
  Receive Date: 20041021
  Receipt Date: 20041013
  Transmission Date: 20050328
  Serious: Yes (Hospitalization, Disabling)
  Sender: FDA-Public Use
  Company Number: BR-MERCK-0410BRA00335

PATIENT
  Age: 31 Year
  Sex: Female

DRUGS (2)
  1. VIOXX [Suspect]
     Indication: MYALGIA
     Route: 048
     Dates: start: 20040907, end: 20040912
  2. SERTRALINE HYDROCHLORIDE [Concomitant]
     Indication: PANIC DISORDER
     Route: 048
     Dates: start: 20040914

REACTIONS (1)
  - PHLEBOTHROMBOSIS [None]
